FAERS Safety Report 12121249 (Version 1)
Quarter: 2016Q1

REPORT INFORMATION
  Report Type: Spontaneous
  Country: GB (occurrence: GB)
  Receive Date: 20160226
  Receipt Date: 20160226
  Transmission Date: 20160526
  Serious: Yes (Other)
  Sender: FDA-Public Use
  Company Number: GB-BECTON DICKINSON-2016BDN00040

PATIENT
  Age: 37 Year
  Sex: Female
  Weight: 44 kg

DRUGS (7)
  1. LANSOPRAZOLE. [Concomitant]
     Active Substance: LANSOPRAZOLE
  2. WARFARIN [Concomitant]
     Active Substance: WARFARIN
  3. PRUCALOPRIDE [Concomitant]
     Active Substance: PRUCALOPRIDE
  4. TOTAL PARENTERAL NUTRITION [Concomitant]
     Active Substance: UNSPECIFIED INGREDIENT
  5. CHLORAPREP [Suspect]
     Active Substance: CHLORHEXIDINE GLUCONATE\ISOPROPYL ALCOHOL
     Indication: CATHETER MANAGEMENT
     Dosage: 3 ML, UNK
     Route: 061
     Dates: start: 20150821, end: 20160112
  6. GABAPENTIN. [Concomitant]
     Active Substance: GABAPENTIN
  7. MEBEVERINE [Concomitant]
     Active Substance: MEBEVERINE

REACTIONS (7)
  - Headache [Recovered/Resolved]
  - Nausea [Recovered/Resolved]
  - Visual impairment [Recovered/Resolved]
  - Dizziness [Recovered/Resolved]
  - Abdominal discomfort [Recovered/Resolved]
  - Cyanosis [Recovered/Resolved]
  - Throat tightness [Recovered/Resolved]

NARRATIVE: CASE EVENT DATE: 201601
